FAERS Safety Report 7223001-7 (Version None)
Quarter: 2011Q1

REPORT INFORMATION
  Report Type: 
  Country: None (occurrence: None)
  Receive Date: 20110112
  Receipt Date: 20110106
  Transmission Date: 20110831
  Serious: Yes (Death)
  Sender: FDA-Public Use
  Company Number: US-B.I. PHARMACEUTICALS,INC./RIDGEFIELD-2011-DE-00184GD

PATIENT
  Age: 37 Year
  Sex: Female

DRUGS (13)
  1. FENTANYL [Suspect]
  2. BUPROPION [Suspect]
     Dosage: FORMULATION: EXTENDED RELEASE
  3. LEVOTHYROXINE [Suspect]
  4. OXCARBAZEPINE [Suspect]
  5. METFORMIN [Suspect]
  6. SIMVASTATIN [Suspect]
  7. TOPIRAMATE [Suspect]
  8. RANITIDINE [Suspect]
  9. DULOXETINE [Suspect]
  10. PREDNISONE [Suspect]
  11. CLONAZEPAM [Suspect]
  12. ARIPIPRAZOLE [Suspect]
  13. GEMFIBROZIL [Suspect]

REACTIONS (3)
  - COMPLETED SUICIDE [None]
  - CARDIAC ARREST [None]
  - RESPIRATORY ARREST [None]
